FAERS Safety Report 8852092 (Version 2)
Quarter: 2012Q4

REPORT INFORMATION
  Report Type: 
  Country: US (occurrence: None)
  Receive Date: 20121022
  Receipt Date: 20121127
  Transmission Date: 20130627
  Serious: No
  Sender: FDA-Public Use
  Company Number: None

PATIENT
  Age: 89 Year
  Sex: Female
  Weight: 77.11 kg

DRUGS (4)
  1. DEXAMETHASONE [Suspect]
     Indication: SENSORINEURAL HEARING LOSS
     Dosage: 0.7 mL per injection 6/29, 7/3, 7/6, 2012
sensorial neural hearing loss.
  2. DEXAMETHASONE [Suspect]
     Indication: SENSORINEURAL HEARING LOSS
     Dates: start: 20120629
  3. DEXAMETHASONE [Suspect]
     Indication: SENSORINEURAL HEARING LOSS
     Dates: start: 20120703
  4. DEXAMETHASONE [Suspect]
     Indication: SENSORINEURAL HEARING LOSS
     Dates: start: 20120706

REACTIONS (4)
  - Tympanic membrane perforation [None]
  - Meningitis bacterial [None]
  - Ear infection [None]
  - Suspected transmission of an infectious agent via product [None]
